FAERS Safety Report 7728651-7 (Version None)
Quarter: 2011Q3

REPORT INFORMATION
  Report Type: 
  Country: None (occurrence: None)
  Receive Date: 20110831
  Receipt Date: 20110831
  Transmission Date: 20111222
  Serious: Yes (Hospitalization)
  Sender: FDA-Public Use
  Company Number: None

PATIENT
  Age: 75 Year
  Sex: Male
  Weight: 111 kg

DRUGS (2)
  1. IBUPROFEN [Suspect]
     Dosage: 800 MG TID PO; 20 MG EVERY DAY PO
     Route: 048
     Dates: start: 20110803, end: 20110808
  2. IBUPROFEN [Suspect]
     Dosage: 800 MG TID PO; 20 MG EVERY DAY PO
     Route: 048
     Dates: start: 19970605, end: 20110808

REACTIONS (6)
  - BACK PAIN [None]
  - RENAL FAILURE ACUTE [None]
  - BLOOD UREA INCREASED [None]
  - MUSCULOSKELETAL PAIN [None]
  - BLOOD CREATININE INCREASED [None]
  - MUSCLE STRAIN [None]
